FAERS Safety Report 5708745-8 (Version None)
Quarter: 2008Q2

REPORT INFORMATION
  Report Type: 
  Country: None (occurrence: None)
  Receive Date: 20080408
  Receipt Date: 20080324
  Transmission Date: 20081010
  Serious: Yes (Life-Threatening)
  Sender: FDA-Public Use
  Company Number: THYM-1000645

PATIENT
  Age: 7 Year
  Sex: Female
  Weight: 19 kg

DRUGS (2)
  1. THYMOGLOBULIN [Suspect]
     Indication: APLASTIC ANAEMIA
     Dosage: 3 MG/KG, ONCE,; 3 MG/KG, ONCE
     Dates: start: 20080103, end: 20080103
  2. THYMOGLOBULIN [Suspect]
     Indication: APLASTIC ANAEMIA
     Dosage: 3 MG/KG, ONCE,; 3 MG/KG, ONCE
     Dates: start: 20080213, end: 20080213

REACTIONS (3)
  - PYREXIA [None]
  - STRIDOR [None]
  - URTICARIA [None]
